FAERS Safety Report 6491146-5 (Version None)
Quarter: 2009Q4

REPORT INFORMATION
  Report Type: 
  Country: None (occurrence: None)
  Receive Date: 20091211
  Receipt Date: 20091203
  Transmission Date: 20100525
  Serious: Yes (Other)
  Sender: FDA-Public Use
  Company Number: US-AMGEN-KDL378344

PATIENT
  Sex: Female
  Weight: 47.7 kg

DRUGS (12)
  1. PROCRIT [Suspect]
     Indication: RENAL FAILURE CHRONIC
     Route: 065
     Dates: start: 20090901
  2. LEXAPRO [Concomitant]
  3. REMERON [Concomitant]
  4. COREG [Concomitant]
  5. LASIX [Concomitant]
  6. HYDRALAZINE HCL [Concomitant]
  7. IMDUR [Concomitant]
  8. OMEPRAZOLE [Concomitant]
  9. POTASSIUM [Concomitant]
  10. NIFEREX [Concomitant]
  11. ULTRAM [Concomitant]
  12. MULTI-VITAMINS [Concomitant]

REACTIONS (1)
  - HAEMOGLOBIN DECREASED [None]
